FAERS Safety Report 9126463 (Version 1)
Quarter: 2013Q1

REPORT INFORMATION
  Report Type: Spontaneous
  Country: US (occurrence: US)
  Receive Date: 20130121
  Receipt Date: 20130121
  Transmission Date: 20140127
  Serious: Yes (Death)
  Sender: FDA-Public Use
  Company Number: US-BAXTER-2013BAX001890

PATIENT
  Sex: Male

DRUGS (2)
  1. DIANEAL LOW CALCIUM [Suspect]
     Indication: PERITONEAL DIALYSIS
     Route: 033
     Dates: start: 20110527, end: 20130108
  2. DIANEAL LOW CALCIUM (ULTRABAG) [Suspect]
     Indication: PERITONEAL DIALYSIS
     Route: 033
     Dates: start: 20110527, end: 20130108

REACTIONS (2)
  - Pneumonia aspiration [Fatal]
  - Fall [Unknown]
